FAERS Safety Report 7235660-3 (Version None)
Quarter: 2011Q1

REPORT INFORMATION
  Report Type: 
  Country: None (occurrence: None)
  Receive Date: 20110120
  Receipt Date: 20110107
  Transmission Date: 20110831
  Serious: Yes (Disabling, Other)
  Sender: FDA-Public Use
  Company Number: US-CELGENEUS-163-21880-11010835

PATIENT
  Sex: Female
  Weight: 49.032 kg

DRUGS (8)
  1. ASPIRIN [Concomitant]
     Route: 065
  2. LEVOXYL [Concomitant]
     Route: 065
  3. REVLIMID [Suspect]
     Indication: PRIMARY AMYLOIDOSIS
     Route: 048
     Dates: start: 20090826
  4. AVAPRO [Concomitant]
     Route: 065
  5. CHLORTHALIDONE [Concomitant]
     Route: 065
  6. CLONIDINE [Concomitant]
     Route: 065
  7. PRILOSEC [Concomitant]
     Route: 065
  8. BONIVA [Concomitant]
     Route: 065

REACTIONS (4)
  - ORAL PAIN [None]
  - LYMPHADENOPATHY [None]
  - PAIN [None]
  - PARAESTHESIA [None]
